FAERS Safety Report 24564382 (Version 1)
Quarter: 2024Q4

REPORT INFORMATION
  Report Type: Spontaneous
  Country: NO (occurrence: NO)
  Receive Date: 20241030
  Receipt Date: 20241030
  Transmission Date: 20250115
  Serious: Yes (Other)
  Sender: SAMSUNG BIOEPIS
  Company Number: None

PATIENT
  Age: 59 Year
  Sex: Female

DRUGS (4)
  1. ADALIMUMAB [Suspect]
     Active Substance: ADALIMUMAB
     Indication: Rheumatoid arthritis
     Dates: end: 2024
  2. ARAVA [Suspect]
     Active Substance: LEFLUNOMIDE
     Indication: Rheumatoid arthritis
     Dosage: START DATE FOR ARAVA IS NOT STATED, BUT SHE HAD PROBABLY USED IT FOR LESS THAN A YEAR.
     Route: 048
     Dates: start: 2023, end: 202402
  3. VIMOVO [Concomitant]
     Active Substance: ESOMEPRAZOLE MAGNESIUM\NAPROXEN
     Indication: Product used for unknown indication
  4. TIBOLON ARISTO [Concomitant]
     Indication: Product used for unknown indication

REACTIONS (6)
  - Hypertension [Not Recovered/Not Resolved]
  - Hyperhidrosis [Recovering/Resolving]
  - Rash [Recovering/Resolving]
  - Weight increased [Unknown]
  - Skin odour abnormal [Unknown]
  - Infection susceptibility increased [Recovering/Resolving]
